FAERS Safety Report 8786766 (Version 1)
Quarter: 2012Q4

REPORT INFORMATION
  Report Type: Report from Study
  Country: US (occurrence: US)
  Receive Date: 20120914
  Receipt Date: 20120914
  Transmission Date: 20130627
  Serious: No
  Sender: FDA-Public Use
  Company Number: US-VERTEX PHARMACEUTICAL INC.-AE-2012-011173

PATIENT
  Age: 51 Year
  Sex: Male

DRUGS (13)
  1. INCIVEK [Suspect]
     Indication: HEPATITIS C
     Route: 048
  2. PEGASYS [Concomitant]
     Indication: HEPATITIS C
  3. RIBAVIRIN [Concomitant]
     Indication: HEPATITIS C
  4. SPIRONOLACT [Concomitant]
  5. LASIX [Concomitant]
  6. VITAMIN C [Concomitant]
  7. PRILOSEC [Concomitant]
  8. VITAMIN D [Concomitant]
  9. BIOTIN [Concomitant]
  10. MULTI VIT MENS [Concomitant]
  11. IMODIUM A-D [Concomitant]
  12. MELATONIN SUB [Concomitant]
  13. VITAMIN B 12 [Concomitant]

REACTIONS (4)
  - Disturbance in attention [Unknown]
  - Fatigue [Unknown]
  - Vomiting [Unknown]
  - Diarrhoea [Unknown]
